FAERS Safety Report 9605112 (Version 2)
Quarter: 2013Q4

REPORT INFORMATION
  Report Type: Spontaneous
  Country: HU (occurrence: HU)
  Receive Date: 20131008
  Receipt Date: 20131008
  Transmission Date: 20140711
  Serious: Yes (Death, Other)
  Sender: FDA-Public Use
  Company Number: HU-PFIZER INC-2013204693

PATIENT
  Age: 66 Year
  Sex: Female

DRUGS (7)
  1. SUTENT [Suspect]
     Indication: METASTATIC RENAL CELL CARCINOMA
     Dosage: 50 MG, CYCLIC
     Route: 048
     Dates: start: 20130513
  2. SUTENT [Suspect]
     Dosage: 50 MG, CYCLIC, 2ND CYCLE (28/14 SCHEMA)
     Dates: start: 20130625, end: 20130809
  3. PANTACID [Concomitant]
     Dosage: 40 MG, 2X/DAY
  4. FUROSEMID [Concomitant]
     Dosage: 1X1/DAY
  5. VEROSPIRON [Concomitant]
     Dosage: 100 ML, 2X/DAY
  6. UREGYT [Concomitant]
     Dosage: DAILY 1, 3X WEEKLY
  7. DICYNONE [Concomitant]
     Dosage: 2X1/DAY

REACTIONS (4)
  - Death [Fatal]
  - Melaena [Unknown]
  - Asthenia [Unknown]
  - Anaemia [Unknown]
